FAERS Safety Report 13060682 (Version 2)
Quarter: 2017Q1

REPORT INFORMATION
  Report Type: Spontaneous
  Country: US (occurrence: US)
  Receive Date: 20161225
  Receipt Date: 20170220
  Transmission Date: 20170428
  Serious: Yes (Life-Threatening, Hospitalization, Other)
  Sender: FDA-Public Use
  Company Number: US-009507513-1612USA010393

PATIENT
  Age: 56 Year
  Sex: Female
  Weight: 97 kg

DRUGS (10)
  1. KEYTRUDA [Suspect]
     Active Substance: PEMBROLIZUMAB
     Indication: TRIPLE NEGATIVE BREAST CANCER
     Dosage: 200 MG, Q3W
     Route: 042
     Dates: start: 20161014, end: 20161119
  2. KEYTRUDA [Suspect]
     Active Substance: PEMBROLIZUMAB
     Indication: METASTASES TO LUNG
  3. GLUTAMINE [Concomitant]
     Active Substance: GLUTAMINE
  4. VITAMINS (UNSPECIFIED) [Concomitant]
     Active Substance: VITAMINS
  5. TAXOL [Concomitant]
     Active Substance: PACLITAXEL
  6. LOVENOX [Suspect]
     Active Substance: ENOXAPARIN SODIUM
     Dosage: 100 MG, Q12H
     Dates: start: 201612
  7. LISINOPRIL. [Concomitant]
     Active Substance: LISINOPRIL
  8. GRANULOCYTE COLONY STIMULATING FACTOR (UNSPECIFIED) [Concomitant]
     Active Substance: FILGRASTIM
     Route: 065
  9. KEYTRUDA [Suspect]
     Active Substance: PEMBROLIZUMAB
     Indication: METASTASES TO SKIN
  10. LEVAQUIN [Concomitant]
     Active Substance: LEVOFLOXACIN

REACTIONS (13)
  - Supraventricular tachycardia [Recovered/Resolved]
  - Hiatus hernia [Unknown]
  - Myocardial infarction [Recovering/Resolving]
  - Cholelithiasis [Unknown]
  - Stress cardiomyopathy [Recovering/Resolving]
  - Cardiac failure congestive [Recovering/Resolving]
  - Oesophagitis [Unknown]
  - Tricuspid valve incompetence [Unknown]
  - Pulmonary embolism [Recovering/Resolving]
  - Bundle branch block left [Unknown]
  - Wound haemorrhage [Unknown]
  - Iron deficiency anaemia [Unknown]
  - Renal failure [Recovering/Resolving]

NARRATIVE: CASE EVENT DATE: 201611
